FAERS Safety Report 24218241 (Version 2)
Quarter: 2025Q2

REPORT INFORMATION
  Report Type: Spontaneous
  Country: US (occurrence: US)
  Receive Date: 20240816
  Receipt Date: 20250519
  Transmission Date: 20250716
  Serious: Yes (Death, Hospitalization, Other)
  Sender: TAIHO ONCOLOGY INC
  Company Number: US-TAIHOP-2024-007808

PATIENT
  Age: 64 Year
  Sex: Female

DRUGS (1)
  1. LYTGOBI [Suspect]
     Active Substance: FUTIBATINIB
     Indication: Product used for unknown indication
     Route: 048
     Dates: start: 202404

REACTIONS (5)
  - Sepsis [Fatal]
  - Calciphylaxis [Fatal]
  - Skin necrosis [Unknown]
  - Hyperphosphataemia [Recovered/Resolved]
  - Hypercalcaemia [Not Recovered/Not Resolved]
